FAERS Safety Report 6955600-1 (Version None)
Quarter: 2010Q3

REPORT INFORMATION
  Report Type: 
  Country: None (occurrence: None)
  Receive Date: 20100826
  Receipt Date: 20100826
  Transmission Date: 20110219
  Serious: Yes (Life-Threatening, Hospitalization, Other)
  Sender: FDA-Public Use
  Company Number: None

PATIENT
  Age: 35 Year
  Sex: Male
  Weight: 74.8435 kg

DRUGS (2)
  1. ACCUTANE [Suspect]
     Dates: start: 19890101
  2. ACCUTANE [Suspect]
     Dates: start: 19930101

REACTIONS (2)
  - INFLAMMATORY BOWEL DISEASE [None]
  - IRRITABLE BOWEL SYNDROME [None]
